FAERS Safety Report 10067264 (Version 1)
Quarter: 2014Q2

REPORT INFORMATION
  Report Type: Spontaneous
  Country: US (occurrence: None)
  Receive Date: 20140408
  Receipt Date: 20140408
  Transmission Date: 20141212
  Serious: Yes (Other)
  Sender: FDA-Public Use
  Company Number: None

PATIENT
  Age: 37 Year
  Sex: Female
  Weight: 68.04 kg

DRUGS (1)
  1. METHYLPHENIDATE ER CONCERTA ER 18 MG [Suspect]
     Dosage: 3 PILLS?ONCE DAILY?TAKEN BY MOUTH
     Route: 048
     Dates: start: 20140319, end: 20140319

REACTIONS (4)
  - Product substitution issue [None]
  - Product quality issue [None]
  - Migraine [None]
  - Vomiting [None]
